FAERS Safety Report 12858485 (Version 3)
Quarter: 2017Q1

REPORT INFORMATION
  Report Type: Spontaneous
  Country: US (occurrence: US)
  Receive Date: 20161018
  Receipt Date: 20170110
  Transmission Date: 20170428
  Serious: Yes (Other)
  Sender: FDA-Public Use
  Company Number: US-BAYER-2016-198941

PATIENT
  Age: 43 Year
  Sex: Female

DRUGS (18)
  1. FLOVENT [Concomitant]
     Active Substance: FLUTICASONE PROPIONATE
     Indication: TINNITUS
     Dosage: 200 ?G, BID
  2. SUDAFED [Concomitant]
     Active Substance: PSEUDOEPHEDRINE HYDROCHLORIDE
     Dosage: UNK UNK, PRN
  3. AMOXICILLIN. [Concomitant]
     Active Substance: AMOXICILLIN
     Indication: ANIMAL BITE
     Dosage: UNK
     Dates: start: 2011, end: 2013
  4. CIPROFLOXACIN. [Suspect]
     Active Substance: CIPROFLOXACIN
     Dosage: 500 MG, QD
     Route: 048
     Dates: start: 20090119, end: 20090129
  5. LEVAQUIN [Suspect]
     Active Substance: LEVOFLOXACIN
     Dosage: 500 MG, QD
     Route: 048
  6. ADVAIR HFA [Concomitant]
     Active Substance: FLUTICASONE PROPIONATE\SALMETEROL XINAFOATE
     Dosage: 250/50 ONE PER DAY
  7. CLARITIN [Concomitant]
     Active Substance: LORATADINE
     Dosage: 10 MG, PRN
  8. AZITHROMYCIN ANHYDROUS. [Concomitant]
     Active Substance: AZITHROMYCIN ANHYDROUS
     Indication: CHILLS
  9. TRAZODONE [Concomitant]
     Active Substance: TRAZODONE HYDROCHLORIDE
     Indication: DEPRESSION
     Dosage: UNK
     Dates: start: 20110822
  10. CITALOPRAM [Concomitant]
     Active Substance: CITALOPRAM HYDROBROMIDE
     Indication: DEPRESSION
     Dosage: UNK
     Dates: start: 2009, end: 2012
  11. PREDNISONE. [Concomitant]
     Active Substance: PREDNISONE
     Indication: ASTHMA
     Dosage: UNK
     Dates: start: 20090119
  12. VITAMIN D [Concomitant]
     Active Substance: CHOLECALCIFEROL
     Indication: VITAMIN D DEFICIENCY
     Dosage: UNK
     Dates: start: 20100914, end: 20110411
  13. CIPROFLOXACIN. [Suspect]
     Active Substance: CIPROFLOXACIN
     Dosage: 500 MG, QD
     Dates: start: 20071127
  14. ALBUTEROL. [Concomitant]
     Active Substance: ALBUTEROL
     Dosage: 1-3 PER DAY
     Route: 055
  15. AZITHROMYCIN ANHYDROUS. [Concomitant]
     Active Substance: AZITHROMYCIN ANHYDROUS
     Indication: PRODUCTIVE COUGH
  16. FLOVENT [Concomitant]
     Active Substance: FLUTICASONE PROPIONATE
     Indication: TINNITUS
     Dosage: UNK
     Dates: start: 2010, end: 2016
  17. AZITHROMYCIN ANHYDROUS. [Concomitant]
     Active Substance: AZITHROMYCIN ANHYDROUS
     Indication: PYREXIA
     Dosage: UNK
     Dates: start: 20120505
  18. CITALOPRAM [Concomitant]
     Active Substance: CITALOPRAM HYDROBROMIDE
     Indication: ANXIETY

REACTIONS (25)
  - Neuropathy peripheral [None]
  - Nervous system disorder [None]
  - Fatigue [None]
  - Insomnia [None]
  - Disturbance in attention [None]
  - Coordination abnormal [None]
  - Palpitations [None]
  - Temperature intolerance [None]
  - Musculoskeletal injury [None]
  - Mental disorder [None]
  - Hypothyroidism [None]
  - Dizziness [None]
  - Cardiovascular disorder [None]
  - Myalgia [None]
  - Muscular weakness [None]
  - Irritable bowel syndrome [None]
  - Depression [None]
  - Eye disorder [None]
  - Anxiety [None]
  - Cognitive disorder [None]
  - Tinnitus [None]
  - Bladder disorder [None]
  - Malaise [None]
  - Skin injury [None]
  - Depersonalisation/derealisation disorder [None]

NARRATIVE: CASE EVENT DATE: 200901
